FAERS Safety Report 5635550-3 (Version None)
Quarter: 2008Q1

REPORT INFORMATION
  Report Type: 
  Country: None (occurrence: None)
  Receive Date: 20080222
  Receipt Date: 20080212
  Transmission Date: 20080703
  Serious: Yes (Other)
  Sender: FDA-Public Use
  Company Number: US-PFIZER INC-2008015191

PATIENT
  Sex: Female
  Weight: 96.363 kg

DRUGS (2)
  1. CHANTIX [Suspect]
     Indication: SMOKING CESSATION THERAPY
     Dates: start: 20080101, end: 20080201
  2. ETANERCEPT [Concomitant]
     Indication: RHEUMATOID ARTHRITIS

REACTIONS (5)
  - DIARRHOEA [None]
  - FEAR [None]
  - HAEMATOCHEZIA [None]
  - NERVOUSNESS [None]
  - PANIC REACTION [None]
